FAERS Safety Report 23676015 (Version 2)
Quarter: 2024Q2

REPORT INFORMATION
  Report Type: Other
  Country: US (occurrence: None)
  Receive Date: 20240327
  Receipt Date: 20240401
  Transmission Date: 20240716
  Serious: Yes (Hospitalization)
  Sender: FDA-Public Use
  Company Number: US-ROCHE-3527805

PATIENT
  Age: 37 Year
  Sex: Female

DRUGS (1)
  1. CELLCEPT [Suspect]
     Active Substance: MYCOPHENOLATE MOFETIL
     Indication: Lupus nephritis
     Dosage: 500MG 2 TABLETS BID
     Route: 048

REACTIONS (4)
  - Lupus nephritis [Unknown]
  - Pain in extremity [Unknown]
  - Lymphadenopathy [Unknown]
  - Off label use [Unknown]
